FAERS Safety Report 9067223 (Version 1)
Quarter: 2013Q1

REPORT INFORMATION
  Report Type: Report from Study
  Country: US (occurrence: US)
  Receive Date: 20130201
  Receipt Date: 20130201
  Transmission Date: 20140127
  Serious: No
  Sender: FDA-Public Use
  Company Number: US-ABBOTT-12P-163-0992907-00

PATIENT
  Age: 62 Year
  Sex: Female

DRUGS (9)
  1. HUMIRA [Suspect]
     Indication: RHEUMATOID ARTHRITIS
     Dates: start: 20120831
  2. METHOTREXATE [Concomitant]
     Indication: PRODUCT USED FOR UNKNOWN INDICATION
     Dosage: 4 TABLETS EVERY SATURDAY AND SUNDAY
  3. PREDNISONE [Concomitant]
     Indication: PRODUCT USED FOR UNKNOWN INDICATION
  4. PREDNISONE [Concomitant]
  5. CYMBALTA [Concomitant]
     Indication: DEPRESSION
     Dosage: EVERY MORNING
  6. TRILEPTAL [Concomitant]
     Indication: BIPOLAR DISORDER
     Dosage: PILLS
  7. TRAZODONE [Concomitant]
     Indication: INSOMNIA
  8. CLONAZEPAM [Concomitant]
     Indication: INSOMNIA
  9. UNKNOWN PAIN PILL [Concomitant]
     Indication: PAIN

REACTIONS (5)
  - Arthralgia [Not Recovered/Not Resolved]
  - Pain in extremity [Not Recovered/Not Resolved]
  - Back pain [Not Recovered/Not Resolved]
  - Foot fracture [Not Recovered/Not Resolved]
  - Drug ineffective [Not Recovered/Not Resolved]
